FAERS Safety Report 9668659 (Version 2)
Quarter: 2013Q4

REPORT INFORMATION
  Report Type: Report from Study
  Country: AU (occurrence: AU)
  Receive Date: 20131105
  Receipt Date: 20131126
  Transmission Date: 20140711
  Serious: Yes (Hospitalization)
  Sender: FDA-Public Use
  Company Number: AU-ROCHE-1298493

PATIENT
  Age: 69 Year
  Sex: Male
  Weight: 73 kg

DRUGS (9)
  1. RANIBIZUMAB [Suspect]
     Indication: RETINAL VEIN OCCLUSION
     Route: 050
     Dates: start: 20130807, end: 20130807
  2. RANIBIZUMAB [Suspect]
     Route: 050
     Dates: start: 20130913, end: 20130913
  3. WARFARIN [Concomitant]
  4. ASPIRIN [Concomitant]
  5. NITROLINGUAL SPRAY [Concomitant]
  6. GLUCOBAY [Concomitant]
  7. DIAMICRON [Concomitant]
  8. MICARDIS [Concomitant]
  9. MINAX [Concomitant]

REACTIONS (1)
  - Cerebral infarction [Recovering/Resolving]
